FAERS Safety Report 11746526 (Version 1)
Quarter: 2015Q4

REPORT INFORMATION
  Report Type: Spontaneous
  Country: None (occurrence: None)
  Receive Date: 20151116
  Receipt Date: 20151116
  Transmission Date: 20160304
  Serious: No
  Sender: FDA-Public Use
  Company Number: None

PATIENT
  Age: 59 Year
  Sex: Male
  Weight: 88.45 kg

DRUGS (1)
  1. ATORVASTATIN 40 MG [Suspect]
     Active Substance: ATORVASTATIN
     Indication: INFLAMMATION
     Dosage: 1  EVERY OTHER DAY  ORAL
     Route: 048
     Dates: start: 20151006, end: 20151107

REACTIONS (1)
  - Myalgia [None]

NARRATIVE: CASE EVENT DATE: 20151107
